FAERS Safety Report 5092056-0 (Version None)
Quarter: 2006Q3

REPORT INFORMATION
  Report Type: 
  Country: None (occurrence: None)
  Receive Date: 20060825
  Receipt Date: 20060815
  Transmission Date: 20061208
  Serious: Yes (Death)
  Sender: FDA-Public Use
  Company Number: TW-2006-023063

PATIENT
  Sex: 0

DRUGS (1)
  1. ULTRAVIST 300 [Suspect]

REACTIONS (1)
  - DEATH [None]
